FAERS Safety Report 7890621-6 (Version None)
Quarter: 2011Q4

REPORT INFORMATION
  Report Type: 
  Country: None (occurrence: None)
  Receive Date: 20111103
  Receipt Date: 20110721
  Transmission Date: 20120403
  Serious: No
  Sender: FDA-Public Use
  Company Number: US-AMGEN-USASP2011037361

PATIENT
  Age: 55 Year
  Sex: Female
  Weight: 71.202 kg

DRUGS (6)
  1. METHOTREXATE [Concomitant]
     Dosage: 2.5 MG, UNK
  2. PREVACID [Concomitant]
     Dosage: 15 MG, UNK
  3. ENBREL [Suspect]
     Indication: PRODUCT USED FOR UNKNOWN INDICATION
     Dosage: 50 MG, QWK
     Route: 058
  4. MOBIC [Concomitant]
     Dosage: 7.5 MG, UNK
  5. FOLIC ACID [Concomitant]
     Dosage: 1 MG, UNK
  6. WELLBUTRIN [Concomitant]
     Dosage: 7.5 MG, UNK

REACTIONS (1)
  - STOMATITIS [None]
